FAERS Safety Report 25500831 (Version 1)
Quarter: 2025Q3

REPORT INFORMATION
  Report Type: Report from Study
  Country: US (occurrence: US)
  Receive Date: 20250701
  Receipt Date: 20250701
  Transmission Date: 20251020
  Serious: Yes (Other)
  Sender: MALLINCKRODT
  Company Number: US-MALLINCKRODT-MNK202500709

PATIENT
  Sex: Female

DRUGS (1)
  1. CORTICOTROPIN [Suspect]
     Active Substance: CORTICOTROPIN
     Indication: Dermatomyositis

REACTIONS (9)
  - Interstitial lung disease [Recovering/Resolving]
  - Pain [Unknown]
  - Hot flush [Not Recovered/Not Resolved]
  - Memory impairment [Not Recovered/Not Resolved]
  - Cough [Not Recovered/Not Resolved]
  - Sensitivity to weather change [Unknown]
  - Laboratory test abnormal [Unknown]
  - Hyperhidrosis [Unknown]
  - Injection site pain [Unknown]
